FAERS Safety Report 6291774-6 (Version None)
Quarter: 2009Q3

REPORT INFORMATION
  Report Type: 
  Country: None (occurrence: None)
  Receive Date: 20090729
  Receipt Date: 20090724
  Transmission Date: 20100115
  Serious: Yes (Hospitalization)
  Sender: FDA-Public Use
  Company Number: A0798621A

PATIENT
  Sex: Female

DRUGS (3)
  1. ASPIRIN [Suspect]
     Indication: DRUG USE FOR UNKNOWN INDICATION
     Dates: end: 20090701
  2. CLOPIDROGREL BISULFATE [Suspect]
     Indication: CORONARY ARTERIAL STENT INSERTION
     Dosage: 75 MG/ PER DAY/ ORAL
     Route: 048
     Dates: start: 20081001
  3. FLECAINIDE ACETATE [Concomitant]

REACTIONS (8)
  - DRUG DOSE OMISSION [None]
  - HAEMORRHAGE SUBCUTANEOUS [None]
  - MYOCARDIAL INFARCTION [None]
  - OEDEMA PERIPHERAL [None]
  - PRURITUS [None]
  - RASH MACULAR [None]
  - THYROXINE DECREASED [None]
  - VULVOVAGINAL PRURITUS [None]
